FAERS Safety Report 22028937 (Version 1)
Quarter: 2023Q1

REPORT INFORMATION
  Report Type: Spontaneous
  Country: DE (occurrence: DE)
  Receive Date: 20230223
  Receipt Date: 20230223
  Transmission Date: 20230418
  Serious: Yes (Hospitalization)
  Sender: FDA-Public Use
  Company Number: DE-LUPIN PHARMACEUTICALS INC.-2023-01399

PATIENT
  Age: 33 Year
  Sex: Female

DRUGS (32)
  1. OLANZAPINE [Suspect]
     Active Substance: OLANZAPINE
     Indication: Tardive dyskinesia
     Dosage: UNK
     Route: 065
  2. OLANZAPINE [Suspect]
     Active Substance: OLANZAPINE
     Indication: Dystonia
  3. TETRABENAZINE [Suspect]
     Active Substance: TETRABENAZINE
     Indication: Tardive dyskinesia
     Dosage: UNK
     Route: 065
  4. TETRABENAZINE [Suspect]
     Active Substance: TETRABENAZINE
     Indication: Dystonia
  5. MIRTAZAPINE [Suspect]
     Active Substance: MIRTAZAPINE
     Indication: Tardive dyskinesia
     Dosage: UNK
     Route: 065
  6. MIRTAZAPINE [Suspect]
     Active Substance: MIRTAZAPINE
     Indication: Dystonia
  7. CLOZAPINE [Suspect]
     Active Substance: CLOZAPINE
     Indication: Tardive dyskinesia
     Dosage: UNK
     Route: 065
  8. CLOZAPINE [Suspect]
     Active Substance: CLOZAPINE
     Indication: Dystonia
  9. PIPAMPERONE [Suspect]
     Active Substance: PIPAMPERONE
     Indication: Tardive dyskinesia
     Dosage: UNK
     Route: 065
  10. PIPAMPERONE [Suspect]
     Active Substance: PIPAMPERONE
     Indication: Dystonia
  11. RISPERIDONE [Suspect]
     Active Substance: RISPERIDONE
     Indication: Tardive dyskinesia
     Dosage: UNK
     Route: 065
  12. RISPERIDONE [Suspect]
     Active Substance: RISPERIDONE
     Indication: Dystonia
  13. OXAZEPAM [Suspect]
     Active Substance: OXAZEPAM
     Indication: Tardive dyskinesia
     Dosage: UNK
     Route: 065
  14. OXAZEPAM [Suspect]
     Active Substance: OXAZEPAM
     Indication: Dystonia
  15. CLONAZEPAM [Suspect]
     Active Substance: CLONAZEPAM
     Indication: Tardive dyskinesia
     Dosage: UNK
     Route: 065
  16. CLONAZEPAM [Suspect]
     Active Substance: CLONAZEPAM
     Indication: Dystonia
  17. CLOBAZAM [Suspect]
     Active Substance: CLOBAZAM
     Indication: Tardive dyskinesia
     Dosage: UNK
     Route: 065
  18. CLOBAZAM [Suspect]
     Active Substance: CLOBAZAM
     Indication: Dystonia
  19. TIZANIDINE [Suspect]
     Active Substance: TIZANIDINE
     Indication: Tardive dyskinesia
     Dosage: UNK
     Route: 065
  20. TIZANIDINE [Suspect]
     Active Substance: TIZANIDINE
     Indication: Dystonia
  21. BACLOFEN [Suspect]
     Active Substance: BACLOFEN
     Indication: Tardive dyskinesia
     Dosage: UNK
     Route: 065
  22. BACLOFEN [Suspect]
     Active Substance: BACLOFEN
     Indication: Dystonia
  23. DANTROLENE [Suspect]
     Active Substance: DANTROLENE
     Indication: Tardive dyskinesia
     Dosage: UNK
     Route: 065
  24. DANTROLENE [Suspect]
     Active Substance: DANTROLENE
     Indication: Dystonia
  25. BUSPIRONE [Suspect]
     Active Substance: BUSPIRONE HYDROCHLORIDE
     Indication: Tardive dyskinesia
     Dosage: UNK
     Route: 065
  26. BUSPIRONE [Suspect]
     Active Substance: BUSPIRONE HYDROCHLORIDE
     Indication: Dystonia
  27. BOTULINUM TOXIN NOS [Suspect]
     Active Substance: BOTULINUM TOXIN NOS
     Indication: Tardive dyskinesia
     Dosage: UNK
     Route: 065
  28. BOTULINUM TOXIN NOS [Suspect]
     Active Substance: BOTULINUM TOXIN NOS
     Indication: Dystonia
  29. FLUOXETINE [Suspect]
     Active Substance: FLUOXETINE HYDROCHLORIDE
     Indication: Tardive dyskinesia
     Dosage: UNK
     Route: 065
  30. FLUOXETINE [Suspect]
     Active Substance: FLUOXETINE HYDROCHLORIDE
     Indication: Dystonia
  31. TRIMIPRAMINE [Suspect]
     Active Substance: TRIMIPRAMINE
     Indication: Tardive dyskinesia
     Dosage: UNK
     Route: 065
  32. TRIMIPRAMINE [Suspect]
     Active Substance: TRIMIPRAMINE
     Indication: Dystonia

REACTIONS (3)
  - Condition aggravated [Unknown]
  - Drug ineffective for unapproved indication [Unknown]
  - Off label use [Unknown]
